FAERS Safety Report 7423607-6 (Version None)
Quarter: 2011Q2

REPORT INFORMATION
  Report Type: 
  Country: None (occurrence: None)
  Receive Date: 20110419
  Receipt Date: 20110415
  Transmission Date: 20111010
  Serious: Yes (Death, Hospitalization, Other)
  Sender: FDA-Public Use
  Company Number: PHHY2010MX47349

PATIENT
  Sex: Female

DRUGS (1)
  1. CO-DIOVAN [Suspect]
     Indication: HYPERTENSION
     Dosage: 1 DF, (320/12.5 MG) DAILY
     Dates: start: 20081212

REACTIONS (7)
  - CEREBRAL HAEMORRHAGE [None]
  - SEPTIC SHOCK [None]
  - WOUND [None]
  - URINARY TRACT INFECTION [None]
  - CYSTITIS [None]
  - SEPSIS [None]
  - UTERINE NEOPLASM [None]
